FAERS Safety Report 12482857 (Version 1)
Quarter: 2016Q2

REPORT INFORMATION
  Report Type: Report from Study
  Country: DK (occurrence: DK)
  Receive Date: 20160620
  Receipt Date: 20160620
  Transmission Date: 20160815
  Serious: Yes (Hospitalization)
  Sender: FDA-Public Use
  Company Number: DK-ROCHE-1772150

PATIENT
  Age: 70 Year
  Sex: Female
  Weight: 49.6 kg

DRUGS (8)
  1. ATEZOLIZUMAB [Suspect]
     Active Substance: ATEZOLIZUMAB
     Indication: NEOPLASM
     Dosage: ON 24/MAY/2016, THE PATIENT RECEIVED THE MOST RECENT DOSE OF ATEZOLIZUMAB PRIOR TO THYROIDITIS. TEMP
     Route: 042
     Dates: start: 20160509, end: 20160607
  2. LAKTULOSE [Concomitant]
     Route: 065
     Dates: start: 2014
  3. PARACETAMOL [Concomitant]
     Active Substance: ACETAMINOPHEN
     Route: 065
     Dates: start: 2014
  4. BUVENTOL [Concomitant]
     Dosage: 1-4 UNIT NOT REPORTED.
     Route: 055
     Dates: start: 2015
  5. MORPHINE [Concomitant]
     Active Substance: MORPHINE
     Route: 065
     Dates: start: 2014
  6. BUFOMIX [Concomitant]
     Route: 055
     Dates: start: 2015
  7. RO 6895882 (CEA-IL2V) [Suspect]
     Active Substance: INVESTIGATIONAL PRODUCT
     Indication: NEOPLASM
     Dosage: ON 24/MAY/2016, THE PATIENT RECEIVED THE MOST RECENT DOSE (15 MG) OF RO 6895882 (CEA-IL2V) PRIOR TO
     Route: 042
     Dates: start: 20160509, end: 20160607
  8. MORPHINE [Concomitant]
     Active Substance: MORPHINE
     Dosage: SLOW RELEASE
     Route: 065
     Dates: start: 2014

REACTIONS (1)
  - Thyroiditis [Recovered/Resolved]

NARRATIVE: CASE EVENT DATE: 20160604
